FAERS Safety Report 25941039 (Version 1)
Quarter: 2025Q4

REPORT INFORMATION
  Report Type: Spontaneous
  Country: US (occurrence: None)
  Receive Date: 20251020
  Receipt Date: 20251020
  Transmission Date: 20260119
  Serious: Yes (Other)
  Sender: FDA-CTU
  Company Number: None

PATIENT
  Age: 41 Year
  Sex: Female

DRUGS (3)
  1. BOTOX [Suspect]
     Active Substance: ONABOTULINUMTOXINA
     Indication: Migraine
     Dosage: NJECT 155 UNITS IN THE MUSCLE INTO HEAD AND NECK EVERY 3 MONTHS?
  2. CELEXA TAB 10MG [Concomitant]
  3. OMEPRAZOLE TAB 20MG [Concomitant]

REACTIONS (1)
  - Abdominal pain [None]

NARRATIVE: CASE EVENT DATE: 20150930
